FAERS Safety Report 7930117-6 (Version None)
Quarter: 2011Q4

REPORT INFORMATION
  Report Type: 
  Country: None (occurrence: None)
  Receive Date: 20111117
  Receipt Date: 20111111
  Transmission Date: 20120403
  Serious: Yes (Death, Hospitalization)
  Sender: FDA-Public Use
  Company Number: UTC-011987

PATIENT
  Age: 65 Year
  Sex: Male
  Weight: 78.6 kg

DRUGS (4)
  1. REVATIO [Concomitant]
  2. REMODULIN [Suspect]
     Indication: PULMONARY ARTERIAL HYPERTENSION
     Dosage: 97.92 UG/KG (0.068 UG/KG, 1 IN 1 MIN), INTRAVENOUS
     Route: 042
     Dates: start: 20100826
  3. COUMADIN [Concomitant]
  4. DIURETICS (DIURETICS) [Concomitant]

REACTIONS (2)
  - RESPIRATORY ARREST [None]
  - CARDIAC ARREST [None]
